FAERS Safety Report 19020863 (Version 1)
Quarter: 2021Q1

REPORT INFORMATION
  Report Type: Spontaneous
  Country: CN (occurrence: CN)
  Receive Date: 20210317
  Receipt Date: 20210317
  Transmission Date: 20210420
  Serious: Yes (Other)
  Sender: FDA-Public Use
  Company Number: CN-BAXTER-2021BAX004986

PATIENT
  Age: 55 Year
  Sex: Female
  Weight: 52 kg

DRUGS (9)
  1. 5% GLUCOSE  INJECTION [Suspect]
     Active Substance: DEXTROSE
     Dosage: DAY 1; PIRARUBICIN HYDROCHLORIDE 80 MG + 5% GLUCOSE 100 ML, Q14D
     Route: 041
     Dates: start: 20210221, end: 20210221
  2. RECOMBINANT HUMAN GRANULOCYTE COLONY?STIMULATING FACTOR [Concomitant]
     Active Substance: GRANULOCYTE COLONY-STIMULATING FACTOR NOS
     Indication: PROPHYLAXIS
     Route: 058
     Dates: start: 20210222, end: 20210224
  3. ENDOXAN [Suspect]
     Active Substance: CYCLOPHOSPHAMIDE
     Indication: BREAST CANCER
     Dosage: (PRIOR CHEMOTHERAPY) ENDOXAN + 0.9% SODIUM CHLORIDE, Q14D
     Route: 041
  4. 0.9% SODIUM CHLORIDE INJECTION [Suspect]
     Active Substance: SODIUM CHLORIDE
     Dosage: DAY 1: ENDOXAN 800 MG + 0.9% SODIUM CHLORIDE 100 ML, Q14D
     Route: 041
     Dates: start: 20210221, end: 20210221
  5. ENDOXAN [Suspect]
     Active Substance: CYCLOPHOSPHAMIDE
     Dosage: DAY 1: ENDOXAN 800 MG + 0.9% SODIUM CHLORIDE 100 ML, Q14D
     Route: 041
     Dates: start: 20210221, end: 20210221
  6. PIRARUBICIN HYDROCHLORIDE [Suspect]
     Active Substance: PIRARUBICIN HYDROCHLORIDE
     Dosage: DAY 1; PIRARUBICIN HYDROCHLORIDE 80 MG + 5% GLUCOSE 100 ML, Q14D
     Route: 041
     Dates: start: 20210221, end: 20210221
  7. PIRARUBICIN HYDROCHLORIDE [Suspect]
     Active Substance: PIRARUBICIN HYDROCHLORIDE
     Indication: BREAST CANCER
     Dosage: (PRIOR CHEMOTHERAPY) PIRARUBICIN HYDROCHLORIDE + 5% GLUCOSE, Q14D
     Route: 041
  8. 0.9% SODIUM CHLORIDE INJECTION [Suspect]
     Active Substance: SODIUM CHLORIDE
     Indication: MEDICATION DILUTION
     Dosage: (PRIOR CHEMOTHERAPY) ENDOXAN + 0.9% SODIUM CHLORIDE, Q14D
     Route: 041
  9. 5% GLUCOSE  INJECTION [Suspect]
     Active Substance: DEXTROSE
     Indication: MEDICATION DILUTION
     Dosage: (PRIOR CHEMOTHERAPY) PIRARUBICIN HYDROCHLORIDE + 5% GLUCOSE, Q14D
     Route: 041

REACTIONS (2)
  - Myelosuppression [Recovered/Resolved]
  - Myelosuppression [Recovered/Resolved]

NARRATIVE: CASE EVENT DATE: 20210302
